FAERS Safety Report 6622088-X (Version None)
Quarter: 2010Q1

REPORT INFORMATION
  Report Type: 
  Country: None (occurrence: None)
  Receive Date: 20100304
  Receipt Date: 20100223
  Transmission Date: 20100710
  Serious: Yes (Other)
  Sender: FDA-Public Use
  Company Number: 2010SP011529

PATIENT
  Sex: Female

DRUGS (1)
  1. GRACIAL (DESOGESTREL/ETHINYLESTRADIOL /00570801/ ) [Suspect]
     Indication: CONTRACEPTION
     Dosage: PO
     Route: 048

REACTIONS (3)
  - DRUG INTERACTION [None]
  - NEPHROLITHIASIS [None]
  - URINARY TRACT INFECTION [None]
